FAERS Safety Report 12749809 (Version 1)
Quarter: 2016Q3

REPORT INFORMATION
  Report Type: Spontaneous
  Country: US (occurrence: US)
  Receive Date: 20160915
  Receipt Date: 20160915
  Transmission Date: 20161109
  Serious: No
  Sender: FDA-Public Use
  Company Number: None

PATIENT
  Age: 50 Year
  Sex: Female
  Weight: 56.25 kg

DRUGS (2)
  1. CITALOPRAM GENERIC FOR CELEXA [Suspect]
     Active Substance: CITALOPRAM HYDROBROMIDE
     Indication: ARTIFICIAL MENOPAUSE
     Route: 048
  2. BENADRYL [Concomitant]
     Active Substance: DIPHENHYDRAMINE HYDROCHLORIDE

REACTIONS (4)
  - Dysphagia [None]
  - Heart rate irregular [None]
  - Paraesthesia [None]
  - Speech disorder [None]

NARRATIVE: CASE EVENT DATE: 20160914
